FAERS Safety Report 8508444-3 (Version None)
Quarter: 2012Q3

REPORT INFORMATION
  Report Type: 
  Country: None (occurrence: None)
  Receive Date: 20120713
  Receipt Date: 20120706
  Transmission Date: 20120928
  Serious: Yes (Hospitalization, Other)
  Sender: FDA-Public Use
  Company Number: US-BAYER-2011-027213

PATIENT
  Age: 39 Year
  Sex: Female

DRUGS (8)
  1. MS CONTIN [Concomitant]
     Indication: PAIN
  2. COLACE [Concomitant]
  3. VICODIN [Concomitant]
     Indication: PAIN
  4. CYCLOBENZAPRINE [Concomitant]
     Dosage: 10 MG, UPTO THREE TIMES A DAY
     Route: 048
     Dates: start: 20080619
  5. HYDROCODONE BITARTRATE [Concomitant]
     Indication: PAIN
  6. YAZ [Suspect]
     Indication: PREMENSTRUAL SYNDROME
     Dosage: UNK
     Dates: start: 20071121, end: 20080831
  7. DIAZEPAM [Concomitant]
     Dosage: 5 MG, 1 TABLET AT NIGHT
     Route: 048
     Dates: start: 20080619
  8. CITALOPRAM HYDROBROMIDE [Concomitant]
     Dosage: 40 MG, QD
     Route: 048
     Dates: start: 20080624, end: 20080911

REACTIONS (14)
  - PHLEBITIS SUPERFICIAL [None]
  - GENERAL PHYSICAL HEALTH DETERIORATION [None]
  - DYSPNOEA [None]
  - THROMBOSIS [None]
  - CHEST PAIN [None]
  - DEEP VEIN THROMBOSIS [None]
  - PULMONARY EMBOLISM [None]
  - CHEST DISCOMFORT [None]
  - DIZZINESS [None]
  - INJURY [None]
  - EMOTIONAL DISTRESS [None]
  - PAIN [None]
  - ANXIETY [None]
  - ANHEDONIA [None]
